FAERS Safety Report 7840880-0 (Version None)
Quarter: 2011Q4

REPORT INFORMATION
  Report Type: 
  Country: None (occurrence: None)
  Receive Date: 20111021
  Receipt Date: 20111021
  Transmission Date: 20120403
  Serious: No
  Sender: FDA-Public Use
  Company Number: None

PATIENT
  Sex: Female
  Weight: 56.246 kg

DRUGS (2)
  1. MULTI-VITAMINS [Concomitant]
  2. TRI-PREVIFEM [Suspect]
     Indication: CONTRACEPTION
     Dosage: 1/DAY BY MOUTH 047
     Route: 048

REACTIONS (2)
  - PRODUCT PACKAGING ISSUE [None]
  - METRORRHAGIA [None]
